FAERS Safety Report 4279973-6 (Version None)
Quarter: 2004Q1

REPORT INFORMATION
  Report Type: 
  Country: None (occurrence: None)
  Receive Date: 20040126
  Receipt Date: 20040116
  Transmission Date: 20041129
  Serious: Yes (Hospitalization)
  Sender: FDA-Public Use
  Company Number: HQWYE464619JAN04

PATIENT
  Age: 84 Year
  Sex: Female

DRUGS (6)
  1. EFFEXOR [Suspect]
     Indication: DIZZINESS
     Dosage: 75 MG 2X PER 1 DAY, ORAL
     Route: 048
     Dates: start: 20031205, end: 20031213
  2. DIOVAN HCT [Suspect]
     Dosage: 12.5 MG/80 MG ONCE DAILY, ORAL
     Route: 048
  3. FOSAMAX [Concomitant]
  4. CALCIMAGON (CALCIUM CARBONATE/COLECALCIFEROL) [Concomitant]
  5. NIMESULIDE (NIMESULIDE) [Concomitant]
  6. PASPERTIN (METOCLOPRAMIDE HYDROCHLORIDE) [Concomitant]

REACTIONS (7)
  - AMNESIA [None]
  - ANOREXIA [None]
  - FALL [None]
  - HYPOKALAEMIA [None]
  - HYPOMAGNESAEMIA [None]
  - HYPONATRAEMIA [None]
  - SYNCOPE [None]
